FAERS Safety Report 17255564 (Version 1)
Quarter: 2020Q1

REPORT INFORMATION
  Report Type: Spontaneous
  Country: US (occurrence: US)
  Receive Date: 20200110
  Receipt Date: 20200110
  Transmission Date: 20200409
  Serious: No
  Sender: FDA-Public Use
  Company Number: US-IPSEN BIOPHARMACEUTICALS, INC.-2009-1307

PATIENT
  Age: 13 Year
  Sex: Male

DRUGS (2)
  1. INCRELEX [Suspect]
     Active Substance: MECASERMIN
     Indication: PRIMARY INSULIN LIKE GROWTH FACTOR-1 DEFICIENCY
     Dosage: 41 UNITS
     Route: 058
     Dates: start: 20080626
  2. INCRELEX [Suspect]
     Active Substance: MECASERMIN
     Dosage: 44 UNITS
     Route: 058
     Dates: end: 20081105

REACTIONS (4)
  - Cartilage hypertrophy [Not Recovered/Not Resolved]
  - Face oedema [Recovered/Resolved]
  - Melanocytic naevus [Recovered/Resolved]
  - Oedema peripheral [Recovered/Resolved]

NARRATIVE: CASE EVENT DATE: 200807
